FAERS Safety Report 14905630 (Version 1)
Quarter: 2018Q2

REPORT INFORMATION
  Report Type: Spontaneous
  Country: US (occurrence: US)
  Receive Date: 20180517
  Receipt Date: 20180517
  Transmission Date: 20180711
  Serious: No
  Sender: FDA-Public Use
  Company Number: US-SA-2018SA032464

PATIENT
  Age: 68 Year
  Sex: Male

DRUGS (2)
  1. SOLOSTAR [Suspect]
     Active Substance: DEVICE
     Indication: TYPE 2 DIABETES MELLITUS
     Dates: start: 2016
  2. LANTUS SOLOSTAR [Suspect]
     Active Substance: INSULIN GLARGINE
     Indication: TYPE 2 DIABETES MELLITUS
     Dosage: 20-25 IU
     Route: 051
     Dates: start: 2016

REACTIONS (6)
  - Glycosylated haemoglobin increased [Recovered/Resolved]
  - Blood glucose decreased [Unknown]
  - Tremor [Unknown]
  - Device leakage [Unknown]
  - Drug dose omission [Unknown]
  - Device colour issue [Unknown]
